FAERS Safety Report 24092735 (Version 3)
Quarter: 2025Q1

REPORT INFORMATION
  Report Type: Spontaneous
  Country: CA (occurrence: CA)
  Receive Date: 20240715
  Receipt Date: 20250130
  Transmission Date: 20250408
  Serious: Yes (Life-Threatening, Other)
  Sender: FERRING
  Company Number: CA-FERRINGPH-2024FE03760

PATIENT

DRUGS (45)
  1. DDAVP [Suspect]
     Active Substance: DESMOPRESSIN ACETATE
     Indication: Product used for unknown indication
     Route: 042
     Dates: start: 20231124, end: 20231124
  2. DDAVP [Suspect]
     Active Substance: DESMOPRESSIN ACETATE
     Route: 065
  3. BUDESONIDE [Suspect]
     Active Substance: BUDESONIDE
     Indication: Product used for unknown indication
     Route: 065
  4. APROTININ\CALCIUM CHLORIDE\FIBRINOGEN HUMAN\THROMBIN [Suspect]
     Active Substance: APROTININ\CALCIUM CHLORIDE\FIBRINOGEN HUMAN\HUMAN THROMBIN
     Indication: Surgery
     Route: 065
     Dates: start: 20241124, end: 20241124
  5. APROTININ\CALCIUM CHLORIDE\FIBRINOGEN HUMAN\THROMBIN [Suspect]
     Active Substance: APROTININ\CALCIUM CHLORIDE\FIBRINOGEN HUMAN\HUMAN THROMBIN
     Indication: Tissue sealing
  6. KETAMINE [Suspect]
     Active Substance: KETAMINE
     Indication: Scoliosis surgery
     Dosage: 0.3 MG/KG, EVERY HOUR
     Route: 065
     Dates: start: 20231124
  7. PROPOFOL [Suspect]
     Active Substance: PROPOFOL
     Indication: Scoliosis surgery
     Dosage: 250 MG/KG, EVERY MINUTE
     Route: 065
     Dates: start: 20231124
  8. PROPOFOL [Suspect]
     Active Substance: PROPOFOL
     Dosage: 175 MG/KG, EVERY MINUTE AT 11:00 AM
     Route: 065
  9. SUFENTANIL CITRATE [Suspect]
     Active Substance: SUFENTANIL CITRATE
     Indication: Product used for unknown indication
     Route: 065
     Dates: start: 20231124
  10. TRANEXAMIC ACID [Suspect]
     Active Substance: TRANEXAMIC ACID
     Indication: Product used for unknown indication
     Route: 065
     Dates: start: 20231124
  11. TRANEXAMIC ACID [Suspect]
     Active Substance: TRANEXAMIC ACID
     Route: 042
  12. ACETAMINOPHEN [Suspect]
     Active Substance: ACETAMINOPHEN
     Indication: Product used for unknown indication
     Route: 065
  13. ALBUTEIN [Suspect]
     Active Substance: ALBUMIN HUMAN
     Indication: Product used for unknown indication
     Route: 042
  14. ALBUTEIN [Suspect]
     Active Substance: ALBUMIN HUMAN
     Route: 042
  15. ALBUTEIN [Suspect]
     Active Substance: ALBUMIN HUMAN
     Route: 065
  16. ALBUTEIN [Suspect]
     Active Substance: ALBUMIN HUMAN
     Route: 042
  17. ALBUTEIN [Suspect]
     Active Substance: ALBUMIN HUMAN
     Route: 065
  18. CALCIUM CHLORIDE [Suspect]
     Active Substance: CALCIUM CHLORIDE
     Indication: Product used for unknown indication
     Route: 065
  19. CALCIUM CHLORIDE [Suspect]
     Active Substance: CALCIUM CHLORIDE
     Route: 042
  20. CEFAZOLIN SODIUM [Suspect]
     Active Substance: CEFAZOLIN SODIUM
     Indication: Product used for unknown indication
     Route: 042
  21. CHLORHEXIDINE GLUCONATE [Suspect]
     Active Substance: CHLORHEXIDINE GLUCONATE
     Indication: Product used for unknown indication
     Route: 065
  22. CHLORHEXIDINE GLUCONATE\ISOPROPYL ALCOHOL [Suspect]
     Active Substance: CHLORHEXIDINE GLUCONATE\ISOPROPYL ALCOHOL
     Indication: Product used for unknown indication
     Route: 065
  23. COAGULATION FACTOR VIIA RECOMBINANT HUMAN-JNCW [Suspect]
     Active Substance: COAGULATION FACTOR VIIA RECOMBINANT HUMAN-JNCW
     Indication: Product used for unknown indication
     Route: 065
  24. DEXAMETHASONE ACETATE [Suspect]
     Active Substance: DEXAMETHASONE ACETATE
     Indication: Product used for unknown indication
     Route: 065
  25. DIPHENHYDRAMINE [Suspect]
     Active Substance: DIPHENHYDRAMINE
     Indication: Product used for unknown indication
     Route: 065
  26. FAMOTIDINE [Suspect]
     Active Substance: FAMOTIDINE
     Indication: Product used for unknown indication
     Route: 065
  27. FIBRINOGEN [Suspect]
     Active Substance: FIBRINOGEN HUMAN
     Indication: Product used for unknown indication
     Route: 065
  28. GABAPENTIN [Suspect]
     Active Substance: GABAPENTIN
     Indication: Product used for unknown indication
     Route: 065
  29. DEVICE\GELATIN [Suspect]
     Active Substance: DEVICE\GELATIN
     Indication: Tissue sealing
     Route: 065
  30. HYDROCORTISONE SODIUM SUCCINATE [Suspect]
     Active Substance: HYDROCORTISONE SODIUM SUCCINATE
     Indication: Product used for unknown indication
     Route: 065
  31. HYDROCORTISONE SODIUM SUCCINATE [Suspect]
     Active Substance: HYDROCORTISONE SODIUM SUCCINATE
     Route: 030
  32. HYDROMORPHONE [Suspect]
     Active Substance: HYDROMORPHONE
     Indication: Product used for unknown indication
     Route: 065
  33. KETAMINE HYDROCHLORIDE [Suspect]
     Active Substance: KETAMINE HYDROCHLORIDE
     Indication: Scoliosis surgery
     Route: 065
  34. MORPHINE [Suspect]
     Active Substance: MORPHINE
     Indication: Product used for unknown indication
     Route: 008
  35. NAPROXEN [Suspect]
     Active Substance: NAPROXEN
     Indication: Product used for unknown indication
     Route: 065
  36. NOREPINEPHRINE BITARTRATE [Suspect]
     Active Substance: NOREPINEPHRINE BITARTRATE
     Indication: Product used for unknown indication
     Route: 065
  37. ONDANSETRON [Suspect]
     Active Substance: ONDANSETRON
     Indication: Product used for unknown indication
     Route: 065
  38. ROCURONIUM [Suspect]
     Active Substance: ROCURONIUM BROMIDE
     Indication: Scoliosis surgery
     Route: 065
  39. ROCURONIUM [Suspect]
     Active Substance: ROCURONIUM BROMIDE
     Route: 042
  40. SUFENTANIL [Suspect]
     Active Substance: SUFENTANIL
     Indication: Product used for unknown indication
     Route: 065
  41. TRANDATE [Suspect]
     Active Substance: LABETALOL HYDROCHLORIDE
     Indication: Product used for unknown indication
     Route: 065
  42. VANCOMYCIN HYDROCHLORIDE [Suspect]
     Active Substance: VANCOMYCIN HYDROCHLORIDE
     Indication: Product used for unknown indication
     Route: 065
  43. VANCOMYCIN HYDROCHLORIDE [Suspect]
     Active Substance: VANCOMYCIN HYDROCHLORIDE
     Route: 042
  44. ALBUTEROL SULFATE [Suspect]
     Active Substance: ALBUTEROL SULFATE
     Indication: Product used for unknown indication
     Route: 065
  45. VON WILLEBRAND FACTOR HUMAN [Suspect]
     Active Substance: VON WILLEBRAND FACTOR HUMAN
     Indication: Product used for unknown indication
     Route: 065

REACTIONS (23)
  - Haemothorax [Recovered/Resolved]
  - Shock [Recovered/Resolved]
  - Shock haemorrhagic [Recovered/Resolved]
  - Anaphylactic reaction [Recovered/Resolved]
  - Adverse reaction [Recovered/Resolved]
  - Anaphylactic shock [Recovered/Resolved]
  - Angiopathy [Recovered/Resolved]
  - Back pain [Recovered/Resolved]
  - Blood pressure increased [Recovered/Resolved]
  - Emphysema [Recovered/Resolved]
  - Epistaxis [Recovered/Resolved]
  - Face oedema [Recovered/Resolved]
  - Flatulence [Recovered/Resolved]
  - Haemorrhage [Recovered/Resolved]
  - Hypersensitivity [Recovered/Resolved]
  - Hypotension [Recovered/Resolved]
  - Hypovolaemia [Recovered/Resolved]
  - Inspiratory capacity decreased [Recovered/Resolved]
  - Mechanical ventilation complication [Recovered/Resolved]
  - Pleural effusion [Recovered/Resolved]
  - Pneumothorax [Recovered/Resolved]
  - Tachycardia [Recovered/Resolved]
  - Urticaria [Recovered/Resolved]

NARRATIVE: CASE EVENT DATE: 20231124
